FAERS Safety Report 11048646 (Version 2)
Quarter: 2015Q2

REPORT INFORMATION
  Report Type: Spontaneous
  Country: DE (occurrence: DE)
  Receive Date: 20150420
  Receipt Date: 20150608
  Transmission Date: 20150821
  Serious: Yes (Life-Threatening, Hospitalization, Other)
  Sender: FDA-Public Use
  Company Number: DE-GLAXOSMITHKLINE-DE2015GSK051780

PATIENT
  Age: 58 Year
  Sex: Female
  Weight: 74 kg

DRUGS (3)
  1. CEFUROXIM-RATIOPHARM [Suspect]
     Active Substance: CEFUROXIME
     Indication: PRODUCT USED FOR UNKNOWN INDICATION
     Dosage: 250 MG, QD
     Route: 048
     Dates: start: 20150317, end: 20150317
  2. ATACAND [Suspect]
     Active Substance: CANDESARTAN CILEXETIL
     Dosage: 4 MG, 1D
  3. SOLUDECORTIN H [Suspect]
     Active Substance: PREDNISOLONE SODIUM SUCCINATE
     Dosage: 20 MG, 1D

REACTIONS (4)
  - Hypersensitivity [Recovered/Resolved]
  - Erythema [Recovered/Resolved]
  - Anaphylactic shock [Recovered/Resolved]
  - Syncope [Recovered/Resolved]

NARRATIVE: CASE EVENT DATE: 20150317
